FAERS Safety Report 7380228-1 (Version None)
Quarter: 2011Q1

REPORT INFORMATION
  Report Type: 
  Country: None (occurrence: None)
  Receive Date: 20110329
  Receipt Date: 20110126
  Transmission Date: 20110831
  Serious: No
  Sender: FDA-Public Use
  Company Number: A0909467A

PATIENT
  Age: 14 Year
  Sex: Male

DRUGS (2)
  1. VALPROATE [Concomitant]
  2. LAMICTAL [Suspect]
     Indication: EPILEPSY
     Dosage: 50MG PER DAY
     Route: 048
     Dates: start: 20110101

REACTIONS (3)
  - IRRITABILITY [None]
  - TERMINAL INSOMNIA [None]
  - ANGER [None]
